FAERS Safety Report 24794223 (Version 1)
Quarter: 2024Q4

REPORT INFORMATION
  Report Type: Spontaneous
  Country: CA (occurrence: CA)
  Receive Date: 20241231
  Receipt Date: 20241231
  Transmission Date: 20250115
  Serious: Yes (Other)
  Sender: B BRAUN
  Company Number: CA-B.Braun Medical Inc.-2168113

PATIENT

DRUGS (7)
  1. DEXTROSE [Suspect]
     Active Substance: DEXTROSE MONOHYDRATE
  2. AMPICILLIN [Suspect]
     Active Substance: AMPICILLIN
  3. AZITHROMYCIN [Suspect]
     Active Substance: AZITHROMYCIN
  4. AZITHROMYCIN ANHYDROUS [Suspect]
     Active Substance: AZITHROMYCIN ANHYDROUS
  5. GENTAMICIN SULFATE [Suspect]
     Active Substance: GENTAMICIN SULFATE
  6. BETAMETHASONE [Suspect]
     Active Substance: BETAMETHASONE
  7. ATOSIBAN [Suspect]
     Active Substance: ATOSIBAN

REACTIONS (2)
  - Premature baby [Unknown]
  - Maternal exposure during pregnancy [Unknown]
